FAERS Safety Report 5660499-X (Version None)
Quarter: 2008Q2

REPORT INFORMATION
  Report Type: 
  Country: None (occurrence: None)
  Receive Date: 20080214
  Receipt Date: 20070221
  Transmission Date: 20081010
  Serious: Yes (Hospitalization)
  Sender: FDA-Public Use
  Company Number: WAES 0610USA06833

PATIENT
  Age: 56 Year
  Sex: Female

DRUGS (1)
  1. TRUSOPT [Suspect]
     Indication: OCULAR HYPERTENSION
     Dosage: OPHT
     Dates: start: 20021030, end: 20060713

REACTIONS (4)
  - ADVERSE EVENT [None]
  - DRUG HYPERSENSITIVITY [None]
  - EYE PRURITUS [None]
  - OCULAR HYPERAEMIA [None]
